FAERS Safety Report 9590685 (Version 1)
Quarter: 2013Q4

REPORT INFORMATION
  Report Type: Spontaneous
  Country: US (occurrence: US)
  Receive Date: 20131003
  Receipt Date: 20131003
  Transmission Date: 20140711
  Serious: No
  Sender: FDA-Public Use
  Company Number: US-AMGEN-USASP2012070157

PATIENT
  Sex: Female
  Weight: 104.31 kg

DRUGS (11)
  1. ENBREL [Suspect]
     Indication: PSORIASIS
     Dosage: 50 MG, QWK
     Route: 058
  2. STELARA [Concomitant]
     Dosage: 45 MG-0.5
  3. OMEPRAZOLE [Concomitant]
     Dosage: 20.6 MG DR
  4. VITAMIN B12                        /00056201/ [Concomitant]
     Dosage: 1000 CR
  5. ATENOLOL [Concomitant]
     Dosage: 25 MG, UNK
  6. LOTENSIN                           /00498401/ [Concomitant]
     Dosage: 5 MG, UNK
  7. ZOCOR [Concomitant]
     Dosage: 10 MG, UNK
  8. XANAX [Concomitant]
     Dosage: 0.25 MG, UNK
  9. LEXAPRO [Concomitant]
     Dosage: 5 MG, UNK
  10. DEPO ESTRADIOL [Concomitant]
     Dosage: 5 MG/ML, UNK
  11. HYDROCHLOROTHIAZIDE WITH TRIAMTERENE [Concomitant]
     Dosage: 25-37.5 UNK, UNK

REACTIONS (1)
  - Drug effect incomplete [Unknown]
